FAERS Safety Report 8780555 (Version 1)
Quarter: 2012Q4

REPORT INFORMATION
  Report Type: 
  Country: US (occurrence: US)
  Receive Date: 20120913
  Receipt Date: 20120913
  Transmission Date: 20130627
  Serious: Yes (Hospitalization, Other)
  Sender: FDA-Public Use
  Company Number: PHEH2012US017785

PATIENT
  Sex: Female

DRUGS (2)
  1. GILENYA [Suspect]
  2. AMPYRA [Suspect]
     Dosage: 10 mg, Q12H
     Dates: start: 20100817

REACTIONS (1)
  - Tremor [Unknown]
